FAERS Safety Report 10239564 (Version 2)
Quarter: 2014Q2

REPORT INFORMATION
  Report Type: Report from Study
  Country: US (occurrence: US)
  Receive Date: 20140616
  Receipt Date: 20140616
  Transmission Date: 20141212
  Serious: Yes (Hospitalization, Other)
  Sender: FDA-Public Use
  Company Number: US-ABBVIE-13P-163-1105177-00

PATIENT
  Age: 39 Year
  Sex: Female

DRUGS (3)
  1. HUMIRA [Suspect]
     Indication: PSORIASIS
     Dates: start: 200512, end: 2006
  2. HUMIRA [Suspect]
     Dates: start: 2007, end: 20140528
  3. SPIRONOLACT [Concomitant]
     Indication: BLOOD PRESSURE

REACTIONS (12)
  - Intervertebral disc degeneration [Unknown]
  - Cholecystectomy [Recovered/Resolved]
  - Headache [Recovering/Resolving]
  - Injection site pruritus [Recovering/Resolving]
  - Stress [Unknown]
  - Pruritus [Recovering/Resolving]
  - Muscle spasms [Not Recovered/Not Resolved]
  - Abdominal distension [Not Recovered/Not Resolved]
  - Musculoskeletal pain [Not Recovered/Not Resolved]
  - Musculoskeletal stiffness [Not Recovered/Not Resolved]
  - Pain in extremity [Not Recovered/Not Resolved]
  - Gastrointestinal inflammation [Unknown]
